FAERS Safety Report 7023598-6 (Version None)
Quarter: 2010Q3

REPORT INFORMATION
  Report Type: 
  Country: None (occurrence: None)
  Receive Date: 20100930
  Receipt Date: 20100930
  Transmission Date: 20110219
  Serious: Yes (Hospitalization)
  Sender: FDA-Public Use
  Company Number: None

PATIENT
  Age: 52 Year
  Sex: Female
  Weight: 166.4701 kg

DRUGS (2)
  1. OPANA [Suspect]
     Indication: FIBROMYALGIA
     Dosage: 10 MG Q 6 HOURS PO
     Route: 048
  2. OPANA [Suspect]
     Indication: PAIN
     Dosage: 10 MG Q 6 HOURS PO
     Route: 048

REACTIONS (5)
  - ABDOMINAL DISTENSION [None]
  - ABDOMINAL PAIN [None]
  - CONSTIPATION [None]
  - DEHYDRATION [None]
  - MUSCLE SPASMS [None]
